FAERS Safety Report 15640842 (Version 1)
Quarter: 2018Q4

REPORT INFORMATION
  Report Type: Spontaneous
  Country: CN (occurrence: CN)
  Receive Date: 20181120
  Receipt Date: 20181120
  Transmission Date: 20190205
  Serious: Yes (Hospitalization, Other)
  Sender: FDA-Public Use
  Company Number: CN-LUNDBECK-DKLU2057301

PATIENT
  Age: 3 Year
  Sex: Male

DRUGS (4)
  1. MIDAZOLAM [Concomitant]
     Active Substance: MIDAZOLAM HYDROCHLORIDE
     Indication: PRODUCT USED FOR UNKNOWN INDICATION
     Route: 065
  2. DIAZEPAM. [Concomitant]
     Active Substance: DIAZEPAM
     Indication: PRODUCT USED FOR UNKNOWN INDICATION
     Route: 065
  3. SABRIL [Suspect]
     Active Substance: VIGABATRIN
     Indication: PRODUCT USED FOR UNKNOWN INDICATION
     Route: 048
  4. VALPROATE SODIUM. [Interacting]
     Active Substance: VALPROATE SODIUM
     Indication: PRODUCT USED FOR UNKNOWN INDICATION
     Route: 048

REACTIONS (4)
  - Hyperammonaemic encephalopathy [Unknown]
  - Drug interaction [Unknown]
  - Loss of consciousness [Recovered/Resolved]
  - Muscle twitching [Recovering/Resolving]
